FAERS Safety Report 4466326-0 (Version None)
Quarter: 2004Q4

REPORT INFORMATION
  Report Type: 
  Country: None (occurrence: None)
  Receive Date: 20041005
  Receipt Date: 20030515
  Transmission Date: 20050328
  Serious: Yes (Hospitalization)
  Sender: FDA-Public Use
  Company Number: JP-GLAXOSMITHKLINE-B0299882A

PATIENT
  Age: 55 Year
  Sex: Male

DRUGS (3)
  1. AMOXICILLIN [Suspect]
     Indication: HELICOBACTER INFECTION
     Dosage: 1500MG PER DAY
     Route: 048
     Dates: start: 20020703, end: 20020709
  2. LANSOPRAZOLE [Suspect]
     Indication: HELICOBACTER INFECTION
     Dosage: 60MG PER DAY
     Route: 048
     Dates: start: 20020703, end: 20020709
  3. CLARITHROMYCIN [Suspect]
     Indication: HELICOBACTER INFECTION
     Dosage: 800MG PER DAY
     Route: 048
     Dates: start: 20020703, end: 20020709

REACTIONS (5)
  - DRUG INEFFECTIVE [None]
  - DUODENAL ULCER [None]
  - MELAENA [None]
  - SHOCK [None]
  - THROMBOSIS [None]
